FAERS Safety Report 18224162 (Version 1)
Quarter: 2020Q3

REPORT INFORMATION
  Report Type: Spontaneous
  Country: AR (occurrence: AR)
  Receive Date: 20200902
  Receipt Date: 20200902
  Transmission Date: 20201103
  Serious: Yes (Hospitalization, Other)
  Sender: FDA-Public Use
  Company Number: AR-PFIZER INC-2020292518

PATIENT
  Age: 80 Year
  Sex: Female

DRUGS (1)
  1. SUTENT [Suspect]
     Active Substance: SUNITINIB MALATE
     Indication: METASTATIC RENAL CELL CARCINOMA
     Dosage: UNK, DAILY
     Dates: start: 20200428, end: 20200727

REACTIONS (10)
  - Vomiting [Unknown]
  - Colitis [Unknown]
  - Anaemia [Recovering/Resolving]
  - Faecal vomiting [Unknown]
  - Bone pain [Unknown]
  - Pain in extremity [Unknown]
  - Chest pain [Recovering/Resolving]
  - Skin disorder [Unknown]
  - Oedema [Unknown]
  - Diarrhoea [Unknown]

NARRATIVE: CASE EVENT DATE: 2020
